FAERS Safety Report 23697091 (Version 1)
Quarter: 2024Q2

REPORT INFORMATION
  Report Type: Spontaneous
  Country: US (occurrence: None)
  Receive Date: 20240401
  Receipt Date: 20240401
  Transmission Date: 20240715
  Serious: Yes (Life-Threatening, Hospitalization)
  Sender: FDA-Public Use
  Company Number: None

PATIENT
  Age: 54 Year
  Sex: Female

DRUGS (1)
  1. REPATHA [Suspect]
     Active Substance: EVOLOCUMAB
     Dosage: 140 MG/ML EVERY 14 DAYS SUBCUTANEOUS
     Route: 058
     Dates: start: 20201026

REACTIONS (1)
  - Breast mass [None]

NARRATIVE: CASE EVENT DATE: 20240401
